FAERS Safety Report 16727758 (Version 1)
Quarter: 2019Q3

REPORT INFORMATION
  Report Type: Spontaneous
  Country: DK (occurrence: DK)
  Receive Date: 20190822
  Receipt Date: 20190822
  Transmission Date: 20191005
  Serious: Yes (Hospitalization)
  Sender: FDA-Public Use
  Company Number: DK-ABBVIE-19K-044-2891252-00

PATIENT
  Age: 50 Year
  Sex: Male

DRUGS (2)
  1. MAVIRET [Suspect]
     Active Substance: GLECAPREVIR\PIBRENTASVIR
     Indication: HEPATITIS C
     Dosage: STYRKE: 100 + 40 MG
     Route: 048
     Dates: start: 20190122, end: 201904
  2. METHADONE [Concomitant]
     Active Substance: METHADONE HYDROCHLORIDE
     Indication: DRUG DEPENDENCE
     Dosage: STYRKE: 20 MG
     Route: 048

REACTIONS (2)
  - Suicide attempt [Recovered/Resolved]
  - Suicidal ideation [Unknown]

NARRATIVE: CASE EVENT DATE: 20190207
